FAERS Safety Report 5381710-9 (Version None)
Quarter: 2007Q3

REPORT INFORMATION
  Report Type: 
  Country: None (occurrence: None)
  Receive Date: 20070709
  Receipt Date: 20070625
  Transmission Date: 20080115
  Serious: Yes (Other)
  Sender: FDA-Public Use
  Company Number: PHBS2007NZ10857

PATIENT
  Sex: Female

DRUGS (1)
  1. CLOZARIL [Suspect]
     Dosage: 350 MG DAILY
     Route: 065

REACTIONS (3)
  - CATATONIA [None]
  - COGNITIVE DISORDER [None]
  - PSYCHOTIC DISORDER [None]
